FAERS Safety Report 7907230-2 (Version None)
Quarter: 2011Q4

REPORT INFORMATION
  Report Type: 
  Country: None (occurrence: None)
  Receive Date: 20111109
  Receipt Date: 20111031
  Transmission Date: 20120403
  Serious: Yes (Other)
  Sender: FDA-Public Use
  Company Number: AUR-APL-2011-04484

PATIENT
  Age: 71 Year
  Sex: Male

DRUGS (4)
  1. METFORMIN HCL [Suspect]
     Indication: TYPE 2 DIABETES MELLITUS
  2. ASPIRIN [Suspect]
     Indication: TYPE 2 DIABETES MELLITUS
  3. SIMVASTATIN [Suspect]
     Indication: HYPERCHOLESTEROLAEMIA
  4. RAMIPRIL [Suspect]
     Indication: TYPE 2 DIABETES MELLITUS

REACTIONS (2)
  - NAEVUS FLAMMEUS [None]
  - SKIN LESION [None]
